FAERS Safety Report 8044547-8 (Version None)
Quarter: 2012Q1

REPORT INFORMATION
  Report Type: 
  Country: None (occurrence: None)
  Receive Date: 20120113
  Receipt Date: 20120112
  Transmission Date: 20120608
  Serious: Yes (Death, Hospitalization)
  Sender: FDA-Public Use
  Company Number: US-JNJFOC-20120101884

PATIENT
  Age: 40 Year
  Sex: Female

DRUGS (5)
  1. OXYCODONE HCL AND ACETAMINOPHEN [Suspect]
     Indication: SUICIDE ATTEMPT
     Route: 048
  2. DOXYLAMINE SUCCINATE [Suspect]
     Indication: SUICIDE ATTEMPT
     Route: 048
  3. OXYMORPHONE [Suspect]
     Indication: SUICIDE ATTEMPT
     Route: 048
  4. SALICYLATES NOS [Suspect]
     Indication: SUICIDE ATTEMPT
     Route: 048
  5. PREGABALIN [Suspect]
     Indication: SUICIDE ATTEMPT
     Route: 048

REACTIONS (1)
  - TOXICITY TO VARIOUS AGENTS [None]
